FAERS Safety Report 4336610-X (Version None)
Quarter: 2004Q2

REPORT INFORMATION
  Report Type: 
  Country: None (occurrence: None)
  Receive Date: 20040407
  Receipt Date: 20040323
  Transmission Date: 20050107
  Serious: Yes (Hospitalization)
  Sender: FDA-Public Use
  Company Number: 205433

PATIENT
  Age: 42 Year
  Sex: Female

DRUGS (11)
  1. HERCEPTIN [Suspect]
     Indication: BREAST CANCER
     Dosage: SEE IMAGE
     Route: 042
     Dates: start: 20040304, end: 20040304
  2. HERCEPTIN [Suspect]
     Indication: BREAST CANCER
     Dosage: SEE IMAGE
     Route: 042
     Dates: start: 20040311
  3. DOCETAXEL (DOCETAXEL) [Suspect]
     Indication: BREAST CANCER
     Dosage: 212 MG, Q3W, INTRAVENOUS
     Route: 042
     Dates: start: 20040305
  4. DOXORUBICIN HYDROCHLORIDE [Suspect]
     Indication: BREAST CANCER
     Dosage: 127 MG, Q3W, INTRAVENOUS
     Route: 042
     Dates: start: 20031211, end: 20040212
  5. CYTOXAN [Suspect]
     Indication: BREAST CANCER
     Dosage: 1272 MG, Q3W, INTRAVENOUS
     Route: 042
     Dates: start: 20031211, end: 20040212
  6. PAMELOR [Concomitant]
  7. PEPCID [Concomitant]
  8. NARATRIPTAN (NARATRIPTAN HYDROCHLORIDE) [Concomitant]
  9. PROCHLORPERAZINE [Concomitant]
  10. FLEXERIL [Concomitant]
  11. DEXAMETHASONE [Concomitant]

REACTIONS (4)
  - FEBRILE NEUTROPENIA [None]
  - NON-CARDIAC CHEST PAIN [None]
  - PLEURITIC PAIN [None]
  - WHITE BLOOD CELL COUNT DECREASED [None]
